FAERS Safety Report 24960440 (Version 1)
Quarter: 2025Q1

REPORT INFORMATION
  Report Type: Spontaneous
  Country: FR (occurrence: FR)
  Receive Date: 20250212
  Receipt Date: 20250212
  Transmission Date: 20250409
  Serious: Yes (Hospitalization)
  Sender: PFIZER
  Company Number: None

PATIENT
  Age: 64 Year
  Sex: Female
  Weight: 65 kg

DRUGS (9)
  1. CYTARABINE [Suspect]
     Active Substance: CYTARABINE
     Indication: T-cell lymphoma stage IV
     Dosage: 680 MG, 1X/DAY
     Route: 042
     Dates: start: 20240411, end: 20240414
  2. MELPHALAN [Suspect]
     Active Substance: MELPHALAN
     Indication: T-cell lymphoma stage IV
     Dosage: 240 MG, 1X/DAY
     Route: 042
     Dates: start: 20240415, end: 20240415
  3. CARMUSTINE [Suspect]
     Active Substance: CARMUSTINE
     Indication: T-cell lymphoma stage IV
     Dosage: 510 MG, 1X/DAY
     Route: 042
     Dates: start: 20240411, end: 20240411
  4. ETOPOSIDE [Suspect]
     Active Substance: ETOPOSIDE
     Indication: T-cell lymphoma stage IV
     Dosage: 340 MG, 1X/DAY
     Route: 042
     Dates: start: 20240411, end: 20240414
  5. METHYLPREDNISOLONE [Concomitant]
     Active Substance: METHYLPREDNISOLONE
  6. ALPRAZOLAM [Concomitant]
     Active Substance: ALPRAZOLAM
  7. VALACYCLOVIR [Concomitant]
     Active Substance: VALACYCLOVIR HYDROCHLORIDE
  8. ZOPICLONE [Concomitant]
     Active Substance: ZOPICLONE
  9. MIANSERIN HYDROCHLORIDE [Concomitant]
     Active Substance: MIANSERIN HYDROCHLORIDE

REACTIONS (3)
  - Febrile bone marrow aplasia [Recovered/Resolved]
  - Diarrhoea [Recovered/Resolved]
  - Mucosal inflammation [Recovered/Resolved]

NARRATIVE: CASE EVENT DATE: 20240419
